FAERS Safety Report 15929863 (Version 1)
Quarter: 2019Q1

REPORT INFORMATION
  Report Type: Spontaneous
  Country: US (occurrence: US)
  Receive Date: 20190206
  Receipt Date: 20190206
  Transmission Date: 20190417
  Serious: No
  Sender: FDA-Public Use
  Company Number: US-009507513-1902USA000253

PATIENT
  Sex: Female

DRUGS (1)
  1. ASMANEX HFA [Suspect]
     Active Substance: MOMETASONE FUROATE
     Indication: PNEUMONIA
     Dosage: UNK

REACTIONS (5)
  - Product quality issue [Unknown]
  - No adverse event [Unknown]
  - Product dose omission [Unknown]
  - Product use in unapproved indication [Unknown]
  - Wrong technique in device usage process [Unknown]

NARRATIVE: CASE EVENT DATE: 20190131
